FAERS Safety Report 6381217-6 (Version None)
Quarter: 2009Q3

REPORT INFORMATION
  Report Type: 
  Country: None (occurrence: None)
  Receive Date: 20090929
  Receipt Date: 20090824
  Transmission Date: 20100115
  Serious: No
  Sender: FDA-Public Use
  Company Number: US-BAYER-200913823BCC

PATIENT
  Age: 83 Year
  Sex: Female
  Weight: 78 kg

DRUGS (9)
  1. ALEVE [Suspect]
     Indication: ARTHRALGIA
     Dosage: TOTAL DAILY DOSE: 220 MG  UNIT DOSE: 220 MG
     Route: 048
     Dates: start: 20090701, end: 20090701
  2. ALEVE [Suspect]
     Dosage: TOTAL DAILY DOSE: 440 MG  UNIT DOSE: 220 MG
     Route: 048
     Dates: start: 20090701, end: 20090701
  3. DIOVAN [Concomitant]
     Route: 065
  4. NORVASC [Concomitant]
     Route: 065
  5. DIGOXIN [Concomitant]
     Route: 065
  6. OSCAL WITH VITAMIN D [Concomitant]
     Route: 065
  7. VITAMIN D [Concomitant]
     Route: 065
  8. ASCORBIC ACID [Concomitant]
     Route: 065
  9. FOSAMAX [Concomitant]
     Route: 065

REACTIONS (1)
  - ARTHRALGIA [None]
